FAERS Safety Report 18326374 (Version 1)
Quarter: 2020Q3

REPORT INFORMATION
  Report Type: Report from Study
  Country: EG (occurrence: EG)
  Receive Date: 20200929
  Receipt Date: 20200929
  Transmission Date: 20201103
  Serious: Yes (Death, Hospitalization)
  Sender: FDA-Public Use
  Company Number: NVSC2020EG263708

PATIENT
  Sex: Male

DRUGS (1)
  1. ENTRESTO [Suspect]
     Active Substance: SACUBITRIL\VALSARTAN
     Indication: CARDIAC FAILURE
     Dosage: 0.5 DF, QD (HALF ONE TABLET OF 200 MG ONCE DAILY)
     Route: 048
     Dates: start: 2018, end: 20200818

REACTIONS (4)
  - COVID-19 [Fatal]
  - Wrong technique in product usage process [Unknown]
  - Hypoxia [Fatal]
  - Off label use [Unknown]

NARRATIVE: CASE EVENT DATE: 2018
